FAERS Safety Report 16116619 (Version 2)
Quarter: 2019Q2

REPORT INFORMATION
  Report Type: Spontaneous
  Country: IT (occurrence: IT)
  Receive Date: 20190326
  Receipt Date: 20190420
  Transmission Date: 20190711
  Serious: Yes (Other)
  Sender: FDA-Public Use
  Company Number: IT-ACCORD-115634

PATIENT
  Age: 60 Year
  Sex: Female
  Weight: 72 kg

DRUGS (10)
  1. HYDROCHLOROTHIAZIDE/LISINOPRIL [Concomitant]
  2. GEMCITABINE/GEMCITABINE HYDROCHLORIDE [Suspect]
     Active Substance: GEMCITABINE\GEMCITABINE HYDROCHLORIDE
     Indication: SMALL CELL LUNG CANCER
     Route: 042
     Dates: start: 20180522, end: 20180725
  3. RANITIDINE. [Concomitant]
     Active Substance: RANITIDINE
  4. INSULIN DEGLUDEC [Concomitant]
     Active Substance: INSULIN DEGLUDEC
  5. NEBIVOLOL. [Concomitant]
     Active Substance: NEBIVOLOL
  6. DUOPLAVIN [Concomitant]
     Active Substance: ASPIRIN\CLOPIDOGREL
  7. TOTALIP [Concomitant]
     Active Substance: ATORVASTATIN
  8. INSULIN [Concomitant]
     Active Substance: INSULIN NOS
  9. EUTIROX [Concomitant]
     Active Substance: LEVOTHYROXINE SODIUM
  10. SOLDESAM [Concomitant]
     Active Substance: DEXAMETHASONE

REACTIONS (10)
  - Gastrooesophageal reflux disease [Recovering/Resolving]
  - Musculoskeletal pain [Recovering/Resolving]
  - Cough [Recovering/Resolving]
  - Rectal haemorrhage [Recovering/Resolving]
  - Abdominal pain upper [Recovering/Resolving]
  - Abdominal pain [Recovering/Resolving]
  - Nausea [Recovering/Resolving]
  - Decreased appetite [Recovering/Resolving]
  - Anaemia [Recovering/Resolving]
  - Pyrexia [Recovering/Resolving]

NARRATIVE: CASE EVENT DATE: 20180523
